FAERS Safety Report 18395800 (Version 1)
Quarter: 2020Q4

REPORT INFORMATION
  Report Type: Spontaneous
  Country: US (occurrence: US)
  Receive Date: 20201018
  Receipt Date: 20201018
  Transmission Date: 20210114
  Serious: No
  Sender: FDA-Public Use
  Company Number: US-SHIRE-US202033943

PATIENT
  Age: 61 Year
  Sex: Female

DRUGS (1)
  1. CUVITRU [Suspect]
     Active Substance: HUMAN IMMUNOGLOBULIN G
     Indication: PRODUCT USED FOR UNKNOWN INDICATION
     Dosage: 8 GRAM, 1X/WEEK
     Route: 058
     Dates: start: 20200814

REACTIONS (6)
  - Aphonia [Unknown]
  - Paraesthesia oral [Unknown]
  - Urticaria [Unknown]
  - Pruritus [Unknown]
  - Cough [Unknown]
  - Blepharospasm [Unknown]

NARRATIVE: CASE EVENT DATE: 20201008
